FAERS Safety Report 20263247 (Version 1)
Quarter: 2021Q4

REPORT INFORMATION
  Report Type: Report from Study
  Country: KR (occurrence: None)
  Receive Date: 20211231
  Receipt Date: 20211231
  Transmission Date: 20220303
  Serious: Yes (Death, Hospitalization)
  Sender: FDA-Public Use
  Company Number: 2021A887136

PATIENT
  Age: 26722 Day
  Sex: Female
  Weight: 56.1 kg

DRUGS (3)
  1. INVESTIGATIONAL PRODUCT [Suspect]
     Active Substance: INVESTIGATIONAL PRODUCT
     Indication: Hepatobiliary cancer
     Dosage: ERBD (ENDOSCOPIC RETROGRADE BILIARY DRAINAGE)
     Route: 065
  2. CERALASERTIB [Suspect]
     Active Substance: CERALASERTIB
     Indication: Hepatobiliary cancer
     Route: 048
     Dates: start: 20211130, end: 20211214
  3. DURVALUMAB [Suspect]
     Active Substance: DURVALUMAB
     Indication: Hepatobiliary cancer
     Route: 042
     Dates: start: 20211116, end: 20211116

REACTIONS (7)
  - Hepatic enzyme increased [Not Recovered/Not Resolved]
  - Cholangitis [Not Recovered/Not Resolved]
  - Neutropenia [Not Recovered/Not Resolved]
  - Thrombocytopenia [Recovered/Resolved]
  - Fungaemia [Not Recovered/Not Resolved]
  - Sepsis [Not Recovered/Not Resolved]
  - Acute hepatic failure [Fatal]

NARRATIVE: CASE EVENT DATE: 20211218
